FAERS Safety Report 7329391-9 (Version None)
Quarter: 2011Q1

REPORT INFORMATION
  Report Type: 
  Country: None (occurrence: None)
  Receive Date: 20110225
  Receipt Date: 20110225
  Transmission Date: 20110831
  Serious: No
  Sender: FDA-Public Use
  Company Number: None

PATIENT
  Age: 57 Year
  Sex: Male
  Weight: 94.3482 kg

DRUGS (1)
  1. GADOLINIUM N/A N/A [Suspect]
     Indication: NUCLEAR MAGNETIC RESONANCE IMAGING
     Dosage: -INJECTION TYPE DVE
     Dates: start: 20110218, end: 20110218

REACTIONS (8)
  - MYALGIA [None]
  - DRUG INTOLERANCE [None]
  - MUSCLE SPASMS [None]
  - MALAISE [None]
  - PRURITUS [None]
  - PAIN [None]
  - CHEST DISCOMFORT [None]
  - RASH [None]
